FAERS Safety Report 10511209 (Version 1)
Quarter: 2014Q4

REPORT INFORMATION
  Report Type: Spontaneous
  Country: JP (occurrence: None)
  Receive Date: 20141008
  Receipt Date: 20141008
  Transmission Date: 20150528
  Serious: Yes (Other)
  Sender: FDA-Public Use
  Company Number: COR_00090_2014

PATIENT
  Age: 32 Year
  Sex: Male
  Weight: 55.1 kg

DRUGS (3)
  1. ETOPOSIDE (ETOPOSIDE) [Suspect]
     Active Substance: ETOPOSIDE
     Indication: TESTICULAR GERM CELL CANCER
  2. BLEOMYCIN [Suspect]
     Active Substance: BLEOMYCIN SULFATE
     Indication: TESTICULAR GERM CELL CANCER
  3. CISPLATIN (CISPLATIN) [Suspect]
     Active Substance: CISPLATIN
     Indication: TESTICULAR GERM CELL CANCER

REACTIONS (3)
  - Pyrexia [None]
  - Tumour necrosis [None]
  - Lung abscess [None]
